FAERS Safety Report 4687208-5 (Version None)
Quarter: 2005Q2

REPORT INFORMATION
  Report Type: 
  Country: None (occurrence: None)
  Receive Date: 20050606
  Receipt Date: 20050525
  Transmission Date: 20051028
  Serious: Yes (Hospitalization)
  Sender: FDA-Public Use
  Company Number: JP-2005-005262

PATIENT
  Age: 30 Year
  Sex: Female
  Weight: 60 kg

DRUGS (4)
  1. BETAFERON(INTERFERON BETA - 1B) INJECTION, 250UG [Suspect]
     Indication: MULTIPLE SCLEROSIS
     Dosage: 8 MIU, EVERY 2D, SUBCUTANEOUS
     Route: 058
     Dates: start: 20020805, end: 20050403
  2. MARZULENE S (LEVOGLUTAMIDE, SODIUM GUALENATE) [Concomitant]
  3. FAMOTIDINE [Concomitant]
  4. ZANTAC [Concomitant]

REACTIONS (10)
  - ASTHENIA [None]
  - DISEASE RECURRENCE [None]
  - HEPATIC FUNCTION ABNORMAL [None]
  - HEPATIC NECROSIS [None]
  - HEPATITIS ACUTE [None]
  - HYPOAESTHESIA [None]
  - JAUNDICE [None]
  - LIVER DISORDER [None]
  - PROTHROMBIN TIME SHORTENED [None]
  - SJOGREN'S SYNDROME [None]
